FAERS Safety Report 12997048 (Version 3)
Quarter: 2016Q4

REPORT INFORMATION
  Report Type: Report from Study
  Country: US (occurrence: US)
  Receive Date: 20161205
  Receipt Date: 20161209
  Transmission Date: 20170207
  Serious: Yes (Hospitalization, Other)
  Sender: FDA-Public Use
  Company Number: MN-009507513-1611USA013762

PATIENT
  Age: 60 Year
  Sex: Male
  Weight: 68.2 kg

DRUGS (13)
  1. CARBOPLATIN. [Concomitant]
     Active Substance: CARBOPLATIN
     Dosage: UNK
     Dates: start: 20160718
  2. PACLITAXEL. [Concomitant]
     Active Substance: PACLITAXEL
     Dosage: UNK
     Dates: start: 20160711
  3. MK-3475 [Suspect]
     Active Substance: PEMBROLIZUMAB
     Dosage: 200 MG, Q3W
     Route: 042
     Dates: start: 20160801, end: 20160801
  4. PACLITAXEL. [Concomitant]
     Active Substance: PACLITAXEL
     Dosage: UNK
     Dates: start: 20160718
  5. PACLITAXEL. [Concomitant]
     Active Substance: PACLITAXEL
     Dosage: UNK
     Dates: start: 20160725
  6. PACLITAXEL. [Concomitant]
     Active Substance: PACLITAXEL
     Dosage: UNK
     Dates: start: 20160801
  7. CARBOPLATIN. [Concomitant]
     Active Substance: CARBOPLATIN
     Dosage: UNK
     Dates: start: 20160801
  8. MK-3475 [Suspect]
     Active Substance: PEMBROLIZUMAB
     Indication: OESOPHAGEAL ADENOCARCINOMA
     Dosage: 200 MG, Q3W
     Route: 042
     Dates: start: 20160708, end: 20160708
  9. CARBOPLATIN. [Concomitant]
     Active Substance: CARBOPLATIN
     Dosage: UNK
     Dates: start: 20160725
  10. MK-3475 [Suspect]
     Active Substance: PEMBROLIZUMAB
     Dosage: 200 MG, Q3W
     Route: 042
     Dates: start: 20160819, end: 20160819
  11. CARBOPLATIN. [Concomitant]
     Active Substance: CARBOPLATIN
     Dosage: UNK
     Dates: start: 20160711
  12. CARBOPLATIN. [Concomitant]
     Active Substance: CARBOPLATIN
     Dosage: UNK
     Dates: start: 20160808
  13. PACLITAXEL. [Concomitant]
     Active Substance: PACLITAXEL
     Dosage: UNK
     Dates: start: 20160808

REACTIONS (7)
  - Intestinal dilatation [Recovered/Resolved]
  - Oesophagectomy [Unknown]
  - Bacteraemia [Recovered/Resolved]
  - Diarrhoea [Unknown]
  - Postoperative ileus [Recovered/Resolved]
  - Gastrointestinal haemorrhage [Recovered/Resolved]
  - Atrial fibrillation [Recovered/Resolved]

NARRATIVE: CASE EVENT DATE: 20161005
